FAERS Safety Report 24357404 (Version 1)
Quarter: 2024Q3

REPORT INFORMATION
  Report Type: Report from Study
  Country: NL (occurrence: NL)
  Receive Date: 20240924
  Receipt Date: 20240924
  Transmission Date: 20241016
  Serious: Yes (Other)
  Sender: ABBVIE
  Company Number: NL-ABBVIE-5502668

PATIENT
  Age: 72 Year
  Sex: Male

DRUGS (12)
  1. CARBIDOPA\LEVODOPA [Suspect]
     Active Substance: CARBIDOPA\LEVODOPA
     Indication: Parkinson^s disease
     Dosage: MD 13.5, CD 3.5 , ED 2.5, REMAINS AT 16 HOURS
     Route: 050
     Dates: start: 20230613, end: 20231113
  2. CARBIDOPA\LEVODOPA [Suspect]
     Active Substance: CARBIDOPA\LEVODOPA
     Dosage: MD 13.5, CD 3.5 , ED 2.5?REMAINS AT 16 HOURS
     Route: 050
     Dates: start: 20231222, end: 20240307
  3. CARBIDOPA\LEVODOPA [Suspect]
     Active Substance: CARBIDOPA\LEVODOPA
     Dosage: MD 13.5, CD 3.5 , ED 2.5, REMAINS AT 16 HOURS
     Route: 050
     Dates: start: 20231113, end: 20231222
  4. CARBIDOPA\LEVODOPA [Suspect]
     Active Substance: CARBIDOPA\LEVODOPA
     Dosage: REMAINS AT 16 HOURS
     Route: 050
     Dates: start: 20201103
  5. CARBIDOPA\LEVODOPA [Suspect]
     Active Substance: CARBIDOPA\LEVODOPA
     Dosage: MD: 13.8ML, CD: 3.5ML/H, ED: 2.50ML?REMAINS AT 16 HOURS
     Route: 050
     Dates: start: 20240307, end: 20240620
  6. CARBIDOPA\LEVODOPA [Suspect]
     Active Substance: CARBIDOPA\LEVODOPA
     Dosage: MD: 13.8ML, CD: 3.5ML/H, ED: 2.50ML?DURATION TEXT: REMAINS AT 16 HOURS
     Route: 050
     Dates: start: 20240917
  7. CARBIDOPA\LEVODOPA [Suspect]
     Active Substance: CARBIDOPA\LEVODOPA
     Dosage: MD: 13.8ML, CD: 3.5ML/H, ED: 2.50ML?DURATION TEXT: REMAINS AT 16 HOURS
     Route: 050
     Dates: start: 20240620, end: 20240917
  8. CLOBETASOL [Concomitant]
     Active Substance: CLOBETASOL
     Indication: Stoma site reaction
  9. CLOBETASOL [Concomitant]
     Active Substance: CLOBETASOL
     Indication: Stoma site reaction
  10. CLOZAPINE [Concomitant]
     Active Substance: CLOZAPINE
     Indication: Product used for unknown indication
  11. RIVOTRIL [Concomitant]
     Active Substance: CLONAZEPAM
     Indication: Abnormal dreams
  12. MOVICOLON [Concomitant]
     Active Substance: POLYETHYLENE GLYCOL 3350\POTASSIUM CHLORIDE\SODIUM BICARBONATE\SODIUM CHLORIDE
     Indication: Gastrointestinal motility disorder
     Dosage: FREQUENCY TEXT: EVERY OTHER DAY

REACTIONS (33)
  - Cerebrovascular accident [Recovered/Resolved]
  - Orthostatic hypotension [Not Recovered/Not Resolved]
  - Loss of personal independence in daily activities [Not Recovered/Not Resolved]
  - Muscle rigidity [Not Recovered/Not Resolved]
  - Speech disorder [Not Recovered/Not Resolved]
  - Reduced facial expression [Not Recovered/Not Resolved]
  - Drooling [Not Recovered/Not Resolved]
  - Dysstasia [Not Recovered/Not Resolved]
  - Poor quality sleep [Recovered/Resolved]
  - Hallucination, visual [Not Recovered/Not Resolved]
  - Musculoskeletal stiffness [Not Recovered/Not Resolved]
  - Motor dysfunction [Recovering/Resolving]
  - Faeces hard [Not Recovered/Not Resolved]
  - Abnormal behaviour [Not Recovered/Not Resolved]
  - Bradykinesia [Not Recovered/Not Resolved]
  - Stoma site erythema [Recovered/Resolved]
  - Cognitive disorder [Not Recovered/Not Resolved]
  - Incontinence [Not Recovered/Not Resolved]
  - Stoma site hypergranulation [Not Recovered/Not Resolved]
  - Bradyphrenia [Not Recovered/Not Resolved]
  - Fatigue [Not Recovered/Not Resolved]
  - Fibroma [Not Recovered/Not Resolved]
  - Stoma site discharge [Recovered/Resolved]
  - Salivary hypersecretion [Not Recovered/Not Resolved]
  - Nocturia [Not Recovered/Not Resolved]
  - Abnormal dreams [Not Recovered/Not Resolved]
  - Transient ischaemic attack [Recovered/Resolved]
  - Somnolence [Not Recovered/Not Resolved]
  - On and off phenomenon [Unknown]
  - Constipation [Unknown]
  - Cerebrovascular accident [Recovered/Resolved]
  - Transient ischaemic attack [Recovered/Resolved]
  - Therapeutic product effect delayed [Unknown]

NARRATIVE: CASE EVENT DATE: 20240624
